FAERS Safety Report 6904704-8 (Version None)
Quarter: 2010Q3

REPORT INFORMATION
  Report Type: 
  Country: None (occurrence: None)
  Receive Date: 20100804
  Receipt Date: 20100726
  Transmission Date: 20110219
  Serious: Yes (Hospitalization, Other)
  Sender: FDA-Public Use
  Company Number: US-BIOGENIDEC-2010BI025491

PATIENT
  Age: 26 Year
  Sex: Male

DRUGS (1)
  1. TYSABRI [Suspect]
     Indication: MULTIPLE SCLEROSIS
     Route: 042
     Dates: start: 20081111

REACTIONS (6)
  - CONVULSION [None]
  - CYANOSIS [None]
  - FATIGUE [None]
  - INFUSION RELATED REACTION [None]
  - PALLOR [None]
  - UROSEPSIS [None]
